FAERS Safety Report 23913918 (Version 1)
Quarter: 2024Q2

REPORT INFORMATION
  Report Type: Spontaneous
  Country: US (occurrence: US)
  Receive Date: 20240529
  Receipt Date: 20240529
  Transmission Date: 20240716
  Serious: Yes (Hospitalization, Other)
  Sender: FDA-Public Use
  Company Number: US-ASTELLAS-2024US014987

PATIENT
  Sex: Male

DRUGS (1)
  1. PADCEV [Suspect]
     Active Substance: ENFORTUMAB VEDOTIN-EJFV
     Indication: Bladder cancer
     Dosage: UNK UNK, UNKNOWN FREQ. (30 MG AND 20 MG VIAL)
     Route: 065
     Dates: start: 20240328

REACTIONS (5)
  - Urinary tract stoma complication [Unknown]
  - Traumatic haemorrhage [Unknown]
  - Urinary tract infection [Unknown]
  - Blood urine present [Unknown]
  - Acute kidney injury [Unknown]
